FAERS Safety Report 22203045 (Version 1)
Quarter: 2023Q2

REPORT INFORMATION
  Report Type: Spontaneous
  Country: US (occurrence: None)
  Receive Date: 20230412
  Receipt Date: 20230412
  Transmission Date: 20230721
  Serious: Yes (Hospitalization)
  Sender: FDA-Public Use
  Company Number: None

PATIENT
  Sex: Female

DRUGS (3)
  1. OPSUMIT [Suspect]
     Active Substance: MACITENTAN
     Indication: Pulmonary arterial hypertension
     Dosage: FREQUENCY : DAILY;?
     Route: 048
     Dates: start: 20230228
  2. ADEMPAS [Suspect]
     Active Substance: RIOCIGUAT
  3. TREPROSTINIL [Suspect]
     Active Substance: TREPROSTINIL

REACTIONS (3)
  - Headache [None]
  - Nausea [None]
  - Respiratory failure [None]

NARRATIVE: CASE EVENT DATE: 20230407
